FAERS Safety Report 25375290 (Version 1)
Quarter: 2025Q2

REPORT INFORMATION
  Report Type: Spontaneous
  Country: LT (occurrence: LT)
  Receive Date: 20250529
  Receipt Date: 20250529
  Transmission Date: 20250717
  Serious: Yes (Life-Threatening, Other)
  Sender: TEVA
  Company Number: LT-TEVA-VS-3335249

PATIENT
  Age: 35 Year
  Sex: Female

DRUGS (8)
  1. ALLOPURINOL [Suspect]
     Active Substance: ALLOPURINOL
     Indication: Acute lymphocytic leukaemia
     Route: 065
  2. VINCRISTINE [Suspect]
     Active Substance: VINCRISTINE
     Indication: Acute lymphocytic leukaemia
     Route: 065
  3. OMEPRAZOLE [Suspect]
     Active Substance: OMEPRAZOLE
     Indication: Acute lymphocytic leukaemia
     Route: 065
  4. CYTARABINE [Suspect]
     Active Substance: CYTARABINE
     Indication: Acute lymphocytic leukaemia
     Route: 065
  5. PREDNISOLONE [Suspect]
     Active Substance: PREDNISOLONE
     Indication: Acute lymphocytic leukaemia
     Route: 065
  6. DEXAMETHASONE [Suspect]
     Active Substance: DEXAMETHASONE
     Indication: Acute lymphocytic leukaemia
     Route: 065
  7. PROGESTERONE [Suspect]
     Active Substance: PROGESTERONE
     Indication: Premature baby
     Route: 065
  8. METHOTREXATE [Suspect]
     Active Substance: METHOTREXATE
     Indication: Acute lymphocytic leukaemia
     Route: 065

REACTIONS (11)
  - Neutropenia [Unknown]
  - Maternal exposure during pregnancy [Unknown]
  - Hepatic enzyme increased [Recovering/Resolving]
  - Thrombocytopenia [Unknown]
  - Pneumocystis jirovecii pneumonia [Unknown]
  - Herpes zoster [Unknown]
  - Pyrexia [Unknown]
  - Arthritis reactive [Unknown]
  - Steroid diabetes [Unknown]
  - Haemoglobin decreased [Unknown]
  - Live birth [Unknown]
